FAERS Safety Report 7150249-2 (Version None)
Quarter: 2010Q4

REPORT INFORMATION
  Report Type: 
  Country: None (occurrence: None)
  Receive Date: 20101207
  Receipt Date: 20101207
  Transmission Date: 20110411
  Serious: Yes (Life-Threatening)
  Sender: FDA-Public Use
  Company Number: None

PATIENT
  Age: 57 Year
  Sex: Male
  Weight: 79.5 kg

DRUGS (11)
  1. ALTEPLASE 100MG GENETECH [Suspect]
     Indication: PULMONARY EMBOLISM
     Dosage: 100MG ONCE INTRAVENOUS
     Route: 042
     Dates: start: 20100319
  2. HEPARIN SODIUM 25,000 UNITS IN DEXTROSE 5% [Suspect]
     Indication: PULMONARY EMBOLISM
     Dosage: 1550 UNITS/HR CONTINUOUS INTAVENOUS INFUSION
     Route: 042
     Dates: start: 20100319, end: 20100322
  3. DOCUSATE SODIUM [Concomitant]
  4. SENNOSIDES [Concomitant]
  5. REGULAR INSULIN [Concomitant]
  6. FAMOTIDINE [Concomitant]
  7. METFORMIN HCL [Concomitant]
  8. ACETAMINOPHEN AND HYDROCODONE BITARTRATE [Concomitant]
  9. BACTRIM DS [Concomitant]
  10. IOHEXOL [Concomitant]
  11. MORPHINE [Concomitant]

REACTIONS (6)
  - ANAEMIA [None]
  - COLON CANCER [None]
  - DEEP VEIN THROMBOSIS [None]
  - HAEMORRHAGE [None]
  - INTRA-ABDOMINAL HAEMATOMA [None]
  - RESPIRATORY ARREST [None]
